FAERS Safety Report 4557089-9 (Version None)
Quarter: 2005Q1

REPORT INFORMATION
  Report Type: 
  Country: None (occurrence: None)
  Receive Date: 20050120
  Receipt Date: 20041207
  Transmission Date: 20050727
  Serious: Yes (Other)
  Sender: FDA-Public Use
  Company Number: DE-GLAXOSMITHKLINE-D0045427A

PATIENT
  Age: 31 Year
  Sex: Female

DRUGS (5)
  1. LAMICTAL [Suspect]
     Indication: EPILEPSY
     Dosage: 25MG PER DAY
     Route: 048
     Dates: start: 20041126, end: 20041213
  2. KEPPRA [Concomitant]
     Indication: EPILEPSY
     Dosage: 1000MG PER DAY
     Route: 048
     Dates: start: 20041124, end: 20041213
  3. LOVELLE [Concomitant]
     Route: 048
  4. LEFAX [Concomitant]
  5. IBUPROFEN [Concomitant]

REACTIONS (6)
  - ANOREXIA [None]
  - BONE PAIN [None]
  - ERYTHEMA [None]
  - IRRITABILITY [None]
  - PHOTOSENSITIVITY REACTION [None]
  - RASH [None]
